FAERS Safety Report 8208367-3 (Version None)
Quarter: 2012Q1

REPORT INFORMATION
  Report Type: 
  Country: None (occurrence: None)
  Receive Date: 20120314
  Receipt Date: 20120307
  Transmission Date: 20120608
  Serious: Yes (Hospitalization)
  Sender: FDA-Public Use
  Company Number: AU-B.I. PHARMACEUTICALS,INC./RIDGEFIELD-2012-AU-00479AU

PATIENT
  Sex: Female

DRUGS (3)
  1. MICARDIS [Suspect]
     Dates: start: 20120201
  2. CLINDAMYCIN [Concomitant]
     Dates: start: 20120229, end: 20120301
  3. MICARDIS HCT [Suspect]
     Dosage: 80/25 MG
     Dates: start: 20090501, end: 20120201

REACTIONS (8)
  - MUSCLE SPASMS [None]
  - SENSORY DISTURBANCE [None]
  - LIMB DISCOMFORT [None]
  - BLOOD SODIUM DECREASED [None]
  - TREMOR [None]
  - SIALOMETAPLASIA [None]
  - MUSCULAR WEAKNESS [None]
  - DIARRHOEA [None]
